FAERS Safety Report 8001617-8 (Version None)
Quarter: 2011Q4

REPORT INFORMATION
  Report Type: 
  Country: None (occurrence: None)
  Receive Date: 20111222
  Receipt Date: 20111207
  Transmission Date: 20120403
  Serious: Yes (Other)
  Sender: FDA-Public Use
  Company Number: JP-ROCHE-1020841

PATIENT

DRUGS (8)
  1. PREDNISOLONE [Suspect]
     Indication: B-CELL LYMPHOMA
     Route: 065
  2. INOTUZUMAB OZOGAMICIN [Suspect]
     Indication: B-CELL LYMPHOMA
     Route: 065
  3. VINCRISTINE [Suspect]
     Indication: B-CELL LYMPHOMA
     Route: 065
  4. MABTHERA [Suspect]
     Indication: B-CELL LYMPHOMA
     Route: 065
  5. CYCLOPHOSPHAMIDE [Suspect]
     Route: 065
  6. CYCLOPHOSPHAMIDE [Suspect]
     Indication: B-CELL LYMPHOMA
     Route: 065
  7. INOTUZUMAB OZOGAMICIN [Suspect]
     Route: 065
  8. CYCLOPHOSPHAMIDE [Suspect]
     Route: 065

REACTIONS (15)
  - ALANINE AMINOTRANSFERASE INCREASED [None]
  - FATIGUE [None]
  - FEBRILE NEUTROPENIA [None]
  - HYPOXIA [None]
  - THROMBOCYTOPENIA [None]
  - HYPERBILIRUBINAEMIA [None]
  - LETHARGY [None]
  - POLLAKIURIA [None]
  - HEPATITIS ACUTE [None]
  - NEUTROPENIA [None]
  - LYMPHOPENIA [None]
  - ASPARTATE AMINOTRANSFERASE INCREASED [None]
  - BLOOD SODIUM DECREASED [None]
  - LEUKOPENIA [None]
  - PLEURAL EFFUSION [None]
